FAERS Safety Report 5017104-5 (Version None)
Quarter: 2006Q2

REPORT INFORMATION
  Report Type: 
  Country: None (occurrence: None)
  Receive Date: 20060526
  Receipt Date: 20060512
  Transmission Date: 20061013
  Serious: Yes (Other)
  Sender: FDA-Public Use
  Company Number: A-US2006-12256

PATIENT
  Age: 58 Year
  Sex: Female

DRUGS (4)
  1. TRACLEER [Suspect]
     Indication: PULMONARY HYPERTENSION
     Dosage: 62.5 MG, BID, ORAL
     Route: 048
     Dates: start: 20060427, end: 20060516
  2. PEPCID [Concomitant]
  3. ASPIRIN [Concomitant]
  4. MULTIVITAMINS (THIAMINE HYDROCHLORIDE, RIBOFLAVIN, RETINOL, PANTHENOL, [Concomitant]

REACTIONS (5)
  - HEART RATE INCREASED [None]
  - HOT FLUSH [None]
  - HYPOAESTHESIA ORAL [None]
  - THROAT TIGHTNESS [None]
  - TONGUE PARALYSIS [None]
